FAERS Safety Report 5241621-6 (Version None)
Quarter: 2007Q1

REPORT INFORMATION
  Report Type: 
  Country: None (occurrence: None)
  Receive Date: 20070215
  Receipt Date: 20070215
  Transmission Date: 20070707
  Serious: Yes (Hospitalization)
  Sender: FDA-Public Use
  Company Number: None

PATIENT
  Age: 57 Year
  Sex: Female
  Weight: 98.4306 kg

DRUGS (6)
  1. TARCEVA [Suspect]
     Indication: BREAST CANCER METASTATIC
     Dosage: 150 MG DAILY
  2. LETROZOLE [Suspect]
     Indication: BREAST CANCER METASTATIC
     Dosage: 2.5MG DAILY
  3. SYNTHROID [Concomitant]
  4. ZOMETA [Concomitant]
  5. COLACE [Concomitant]
  6. MIRALAX [Concomitant]

REACTIONS (2)
  - HILAR LYMPHADENOPATHY [None]
  - PLEURAL EFFUSION [None]
